FAERS Safety Report 6616942-2 (Version None)
Quarter: 2010Q1

REPORT INFORMATION
  Report Type: 
  Country: None (occurrence: None)
  Receive Date: 20100301
  Receipt Date: 20100208
  Transmission Date: 20100710
  Serious: Yes (Other)
  Sender: FDA-Public Use
  Company Number: 513902

PATIENT
  Age: 39 Year
  Sex: Female
  Weight: 60 kg

DRUGS (10)
  1. METHOTREXATE [Suspect]
     Indication: RHEUMATOID ARTHRITIS
     Dosage: 25 MG, 1 DAY, SUBCUTANEOUS
     Route: 058
  2. HYDROXYCHLOROQUINE SULFATE [Suspect]
     Indication: RHEUMATOID ARTHRITIS
     Dosage: 200 MG, 1 DAY, ORAL
     Route: 048
  3. ENBREL [Suspect]
     Indication: PSORIATIC ARTHROPATHY
     Dosage: 25 MG, 2 WEEK, SUBCUTANEOUS
     Route: 058
     Dates: start: 20041210
  4. (DF118) [Suspect]
     Indication: DRUG USE FOR UNKNOWN INDICATION
     Dosage: ORAL
     Route: 048
  5. CITALOPRAM HYDROBROMIDE [Suspect]
     Indication: DRUG USE FOR UNKNOWN INDICATION
     Dosage: NOT REPORTED, UNKNOWN, NOT REPORTED
  6. (DICLOFENAC) [Suspect]
     Indication: DRUG USE FOR UNKNOWN INDICATION
     Dosage: 75 MG, 2 DAY, NOT REPORTED
  7. FOLIC ACID [Suspect]
     Indication: DRUG USE FOR UNKNOWN INDICATION
     Dosage: NOT REPORTED, UNKNOWN,  NOT REPORTED
  8. PLAVIX [Suspect]
     Dosage: NOT REPORTED, UNKNOWN, NOT REPORTED
  9. (ORAL CONTRACEPTIVE NOS) [Suspect]
     Dosage: NOT REPORTED, UNKNOWN, ORAL
     Route: 048
  10. (VOLTRAOL /00372302/) [Suspect]
     Dosage: NOT REPORTED, UNKNOWN, OPHTHALIMIC
     Route: 047

REACTIONS (1)
  - GALACTORRHOEA [None]
